FAERS Safety Report 7764458-2 (Version None)
Quarter: 2011Q3

REPORT INFORMATION
  Report Type: 
  Country: None (occurrence: None)
  Receive Date: 20110921
  Receipt Date: 20110914
  Transmission Date: 20111222
  Serious: Yes (Other)
  Sender: FDA-Public Use
  Company Number: US-SANOFI-AVENTIS-2011SA054244

PATIENT
  Age: 57 Year
  Sex: Female
  Weight: 75.91 kg

DRUGS (3)
  1. DEXAMETHASONE [Concomitant]
  2. TAXOTERE [Suspect]
     Indication: BREAST CANCER
     Dosage: 60 MG/M2
     Route: 041
     Dates: start: 20110714, end: 20110714
  3. TAXOTERE [Suspect]
     Dosage: 60 MG/M2
     Route: 041
     Dates: start: 20110803, end: 20110803

REACTIONS (5)
  - PYREXIA [None]
  - PNEUMONITIS [None]
  - RESPIRATORY FAILURE [None]
  - HYPOXIA [None]
  - CAPILLARY LEAK SYNDROME [None]
